FAERS Safety Report 10239898 (Version 1)
Quarter: 2014Q2

REPORT INFORMATION
  Report Type: Spontaneous
  Country: US (occurrence: US)
  Receive Date: 20140616
  Receipt Date: 20140616
  Transmission Date: 20141212
  Serious: Yes (Hospitalization)
  Sender: FDA-Public Use
  Company Number: US-ABBVIE-14P-163-1246486-00

PATIENT
  Sex: Female

DRUGS (4)
  1. HUMIRA [Suspect]
     Indication: PSORIASIS
     Dates: start: 2006, end: 201304
  2. HUMIRA [Suspect]
     Dates: start: 2013, end: 2013
  3. NORCO [Suspect]
     Indication: CAESAREAN SECTION
  4. PRENATAL [Concomitant]
     Indication: VITAMIN SUPPLEMENTATION

REACTIONS (4)
  - Amniotic fluid volume decreased [Recovered/Resolved]
  - Arthralgia [Recovered/Resolved]
  - Rash [Recovered/Resolved]
  - Psoriasis [Not Recovered/Not Resolved]
